FAERS Safety Report 8166987-9 (Version None)
Quarter: 2012Q1

REPORT INFORMATION
  Report Type: 
  Country: None (occurrence: None)
  Receive Date: 20120227
  Receipt Date: 20120217
  Transmission Date: 20120608
  Serious: Yes (Hospitalization)
  Sender: FDA-Public Use
  Company Number: US-NOVOPROD-345375

PATIENT
  Age: 81 Year
  Sex: Male
  Weight: 108.84 kg

DRUGS (5)
  1. FUROSEMIDE [Concomitant]
     Indication: PRODUCT USED FOR UNKNOWN INDICATION
     Dosage: UNKNOWN
     Route: 065
  2. GLIPIZIDE [Concomitant]
     Indication: TYPE 2 DIABETES MELLITUS
     Dosage: UNKNOWN
     Route: 065
  3. NOVOLIN 70/30 [Suspect]
     Indication: TYPE 2 DIABETES MELLITUS
     Dosage: 15 U, BID
     Route: 058
     Dates: end: 20120201
  4. ESMOLOL HCL [Concomitant]
     Indication: HYPERTENSION
     Dosage: UNKNOWN
     Route: 065
  5. ADVAIR DISKUS 100/50 [Concomitant]
     Indication: ASTHMA
     Dosage: UNKNOWN
     Route: 065

REACTIONS (3)
  - RENAL IMPAIRMENT [None]
  - PULMONARY OEDEMA [None]
  - RENAL PAIN [None]
